FAERS Safety Report 5254583-2 (Version None)
Quarter: 2007Q1

REPORT INFORMATION
  Report Type: 
  Country: None (occurrence: None)
  Receive Date: 20070302
  Receipt Date: 20070219
  Transmission Date: 20070707
  Serious: Yes (Other)
  Sender: FDA-Public Use
  Company Number: JP-PFIZER INC-2007013767

PATIENT
  Age: 35 Year
  Sex: Female

DRUGS (1)
  1. CORTRIL (TABS) [Suspect]
     Route: 048

REACTIONS (2)
  - ADRENALECTOMY [None]
  - AMENORRHOEA [None]
